FAERS Safety Report 18673989 (Version 1)
Quarter: 2020Q4

REPORT INFORMATION
  Report Type: Spontaneous
  Country: US (occurrence: US)
  Receive Date: 20201229
  Receipt Date: 20201229
  Transmission Date: 20210114
  Serious: No
  Sender: FDA-Public Use
  Company Number: US-JNJFOC-20201233829

PATIENT
  Age: 41 Year
  Sex: Male
  Weight: 77.18 kg

DRUGS (1)
  1. MENS ROGAINE EXTRA STRENGTH [Suspect]
     Active Substance: MINOXIDIL
     Indication: PRODUCT USED FOR UNKNOWN INDICATION
     Dosage: DOSE: HALF A CAP?PRODUCT LAST ADMINISTERED ON 02-DEC-2020
     Route: 061
     Dates: start: 20201201

REACTIONS (2)
  - Application site pain [Recovering/Resolving]
  - Application site rash [Recovered/Resolved]

NARRATIVE: CASE EVENT DATE: 20201202
